FAERS Safety Report 11109987 (Version 2)
Quarter: 2015Q2

REPORT INFORMATION
  Report Type: Spontaneous
  Country: IT (occurrence: IT)
  Receive Date: 20150513
  Receipt Date: 20150513
  Transmission Date: 20150821
  Serious: Yes (Hospitalization)
  Sender: FDA-Public Use
  Company Number: PHHY2015IT052270

PATIENT
  Age: 29 Year
  Sex: Female

DRUGS (5)
  1. FLUCONAZOLE. [Interacting]
     Active Substance: FLUCONAZOLE
     Indication: CANDIDA INFECTION
     Dosage: 100 MG, QD
     Route: 048
  2. CLOZAPINE. [Suspect]
     Active Substance: CLOZAPINE
     Indication: SCHIZOAFFECTIVE DISORDER
     Dosage: 25 MG, QD
     Route: 048
  3. DROSPIRENONE+ETHINYLESTRADIOL [Interacting]
     Active Substance: DROSPIRENONE\ETHINYL ESTRADIOL
     Indication: CONTRACEPTION
     Dosage: 1 DF, QD
     Route: 048
  4. MICONAZOLE [Interacting]
     Active Substance: MICONAZOLE
     Indication: CANDIDA INFECTION
     Dosage: 20 MG, BID
     Route: 061
  5. CLOZAPINE. [Interacting]
     Active Substance: CLOZAPINE
     Dosage: 225 MG, QD
     Route: 048

REACTIONS (7)
  - Tachycardia [Recovered/Resolved]
  - Vomiting [Recovered/Resolved]
  - Palpitations [Recovered/Resolved]
  - Pericarditis [Recovered/Resolved]
  - Nausea [Recovered/Resolved]
  - Drug interaction [Unknown]
  - Pericardial effusion [Recovered/Resolved]
